FAERS Safety Report 22046927 (Version 1)
Quarter: 2023Q1

REPORT INFORMATION
  Report Type: Report from Study
  Country: BR (occurrence: BR)
  Receive Date: 20230228
  Receipt Date: 20230228
  Transmission Date: 20230417
  Serious: Yes (Hospitalization)
  Sender: FDA-Public Use
  Company Number: BR-BIOGEN-2023BI01190519

PATIENT
  Age: 31 Year
  Sex: Female
  Weight: 68 kg

DRUGS (2)
  1. TECFIDERA [Suspect]
     Active Substance: DIMETHYL FUMARATE
     Indication: Multiple sclerosis
     Route: 050
     Dates: start: 202011, end: 202104
  2. VITAMIN D [Concomitant]
     Active Substance: VITAMIN D NOS
     Indication: Vitamin D decreased
     Route: 050
     Dates: start: 202010

REACTIONS (2)
  - Sensory loss [Recovered/Resolved]
  - Treatment failure [Unknown]

NARRATIVE: CASE EVENT DATE: 20210329
